FAERS Safety Report 7647190-5 (Version None)
Quarter: 2011Q3

REPORT INFORMATION
  Report Type: 
  Country: None (occurrence: None)
  Receive Date: 20110801
  Receipt Date: 20110722
  Transmission Date: 20111222
  Serious: No
  Sender: FDA-Public Use
  Company Number: US-DX529-2011DX000040

PATIENT
  Age: 59 Year
  Sex: Female
  Weight: 86.18 kg

DRUGS (18)
  1. METOCARBAMOL [Concomitant]
     Indication: OSTEOARTHRITIS
     Dates: start: 20010101
  2. ZANTAC [Concomitant]
     Indication: ANTIALLERGIC THERAPY
     Dates: start: 19910101
  3. KALBITOR [Suspect]
     Indication: HEREDITARY ANGIOEDEMA
     Route: 058
     Dates: start: 20110705, end: 20110705
  4. ALBUTEROL [Concomitant]
     Indication: ASTHMA
     Dates: start: 20010101
  5. DOXEPIN [Concomitant]
     Indication: SWELLING
  6. COMBIVENT [Concomitant]
     Indication: ASTHMA
     Route: 055
     Dates: start: 20090101
  7. BENADRYL [Concomitant]
     Indication: HYPERSENSITIVITY
     Dates: start: 20110501
  8. DANAZOL [Concomitant]
     Indication: HEREDITARY ANGIOEDEMA
  9. MACRODANTIN [Concomitant]
     Indication: CYSTITIS
     Dates: start: 20010101
  10. ATIVAN [Concomitant]
     Indication: ESSENTIAL TREMOR
     Dates: start: 20090101
  11. MARAPEX [Concomitant]
     Indication: MUSCLE SPASMS
     Dates: start: 20060101
  12. VICODIN [Concomitant]
     Indication: PAIN
     Dates: start: 20080101
  13. PRILOSEC [Concomitant]
     Indication: HEREDITARY ANGIOEDEMA
     Dates: start: 20060101
  14. ADVAIR DISKUS 100/50 [Concomitant]
     Indication: ASTHMA
     Route: 055
     Dates: start: 20090101
  15. MYSOLINE [Concomitant]
     Indication: ESSENTIAL TREMOR
     Dates: start: 20090101
  16. NODOSE [Concomitant]
     Indication: BLOOD PRESSURE ABNORMAL
     Dates: start: 20110701
  17. ALDACTONE [Concomitant]
     Indication: BLOOD PRESSURE INCREASED
     Dates: start: 20110601
  18. MAGNESIUM OXIDE [Concomitant]
     Indication: MUSCLE SPASMS
     Dates: start: 20110701

REACTIONS (3)
  - WEIGHT DECREASED [None]
  - BLOOD GLUCOSE FLUCTUATION [None]
  - DIABETES MELLITUS [None]
